APPROVED DRUG PRODUCT: DEXMETHYLPHENIDATE HYDROCHLORIDE
Active Ingredient: DEXMETHYLPHENIDATE HYDROCHLORIDE
Strength: 35MG
Dosage Form/Route: CAPSULE, EXTENDED RELEASE;ORAL
Application: A213813 | Product #007 | TE Code: AB
Applicant: GRANULES PHARMACEUTICALS INC
Approved: Sep 9, 2020 | RLD: No | RS: No | Type: RX